FAERS Safety Report 5699303-2 (Version None)
Quarter: 2008Q2

REPORT INFORMATION
  Report Type: 
  Country: None (occurrence: None)
  Receive Date: 20080404
  Receipt Date: 20080320
  Transmission Date: 20081010
  Serious: No
  Sender: FDA-Public Use
  Company Number: US023051

PATIENT

DRUGS (4)
  1. FENTORA [Suspect]
     Indication: CANCER PAIN
     Dosage: 200 UG Q1HR PRN BUCCAL
     Route: 002
  2. MARCAINE /00330101/ [Concomitant]
  3. MORPHINE [Concomitant]
  4. DILAUDID [Concomitant]

REACTIONS (1)
  - DRUG PRESCRIBING ERROR [None]
